FAERS Safety Report 9129681 (Version 2)
Quarter: 2013Q3

REPORT INFORMATION
  Report Type: Spontaneous
  Country: US (occurrence: US)
  Receive Date: 20130228
  Receipt Date: 20130828
  Transmission Date: 20140515
  Serious: Yes (Other)
  Sender: FDA-Public Use
  Company Number: US-US-EMD SERONO, INC.-7160900

PATIENT
  Age: 63 Year
  Sex: Male
  Weight: 70 kg

DRUGS (5)
  1. EGRIFTA [Suspect]
     Indication: LIPODYSTROPHY ACQUIRED
     Route: 058
     Dates: start: 20120903
  2. LYRICA [Concomitant]
     Indication: FIBROMYALGIA
  3. ATAZANAVIR [Concomitant]
     Indication: PRODUCT USED FOR UNKNOWN INDICATION
     Route: 048
  4. RITONAVIR [Concomitant]
     Indication: PRODUCT USED FOR UNKNOWN INDICATION
     Route: 048
  5. HYDROCODONE W/ACETAMINOPHEN [Concomitant]
     Indication: PAIN
     Route: 048

REACTIONS (7)
  - Cervical spinal stenosis [Recovered/Resolved]
  - Spinal osteoarthritis [Recovered/Resolved]
  - Arthralgia [Not Recovered/Not Resolved]
  - Pain in extremity [Not Recovered/Not Resolved]
  - Pain in extremity [Unknown]
  - Pain in extremity [Unknown]
  - Myalgia [Not Recovered/Not Resolved]
